FAERS Safety Report 6044781-2 (Version None)
Quarter: 2009Q1

REPORT INFORMATION
  Report Type: 
  Country: None (occurrence: None)
  Receive Date: 20090120
  Receipt Date: 20090119
  Transmission Date: 20090719
  Serious: Yes (Other)
  Sender: FDA-Public Use
  Company Number: DE-B.I. PHARMACEUTICALS,INC./RIDGEFIELD-2009-DE-00390DE

PATIENT
  Sex: Female
  Weight: 60 kg

DRUGS (7)
  1. MICARDIS [Suspect]
     Dosage: ONCE 7 TABLETS
     Route: 048
  2. CYMBALTA [Suspect]
     Dosage: ONCE 14 TABLETS
     Route: 048
  3. THOMAPYRIN [Suspect]
     Dosage: ONCE 5 TABLETS
     Route: 048
  4. ASPIRIN [Suspect]
     Dosage: UNKNOWN AMOUNT
     Route: 048
  5. BETA BLOCKING AGENTS [Suspect]
     Dosage: UNKNOWN AMOUNT
     Route: 048
  6. L-TYROXIN [Suspect]
     Dosage: ONCE 15 TABLETS
     Route: 048
  7. METOCLOPRAMIDE [Suspect]
     Dosage: ONCE 4 TABLETS
     Route: 048

REACTIONS (5)
  - DRUG ABUSE [None]
  - OVERDOSE [None]
  - SOPOR [None]
  - SUICIDE ATTEMPT [None]
  - TACHYCARDIA [None]
